FAERS Safety Report 10805956 (Version 1)
Quarter: 2015Q1

REPORT INFORMATION
  Report Type: Report from Study
  Country: US (occurrence: US)
  Receive Date: 20150217
  Receipt Date: 20150217
  Transmission Date: 20150721
  Serious: No
  Sender: FDA-Public Use
  Company Number: US-ABBVIE-14K-163-1262756-00

PATIENT
  Age: 54 Year
  Sex: Female

DRUGS (4)
  1. ISONIAZIDE [Concomitant]
     Active Substance: ISONIAZID
     Indication: CHEST X-RAY ABNORMAL
     Dates: start: 201310, end: 201407
  2. HUMIRA [Suspect]
     Active Substance: ADALIMUMAB
     Dates: start: 201407
  3. HUMIRA [Suspect]
     Active Substance: ADALIMUMAB
     Indication: RHEUMATOID ARTHRITIS
     Dates: start: 20140522
  4. AMLODIPINE [Concomitant]
     Active Substance: AMLODIPINE BESYLATE
     Indication: HYPERTENSION

REACTIONS (6)
  - Injection site erythema [Unknown]
  - Joint lock [Not Recovered/Not Resolved]
  - Tension [Not Recovered/Not Resolved]
  - Injection site discolouration [Unknown]
  - Injection site induration [Unknown]
  - Arthralgia [Not Recovered/Not Resolved]

NARRATIVE: CASE EVENT DATE: 2014
